FAERS Safety Report 6742318-3 (Version None)
Quarter: 2010Q2

REPORT INFORMATION
  Report Type: 
  Country: None (occurrence: None)
  Receive Date: 20100526
  Receipt Date: 20100521
  Transmission Date: 20101027
  Serious: Yes (Other)
  Sender: FDA-Public Use
  Company Number: US-AMGEN-KDL408872

PATIENT
  Sex: Male

DRUGS (9)
  1. ARANESP [Suspect]
     Indication: RENAL FAILURE CHRONIC
     Dates: start: 20100127
  2. FOLIC ACID [Concomitant]
  3. PRILOSEC [Concomitant]
  4. PRAVACHOL [Concomitant]
  5. SOTALOL HCL [Concomitant]
  6. LEVOTHYROXINE SODIUM [Concomitant]
  7. SPIRONOLACTONE [Concomitant]
  8. FUROSEMIDE [Concomitant]
  9. PREDNISONE TAB [Concomitant]

REACTIONS (2)
  - DRUG INEFFECTIVE [None]
  - MYELODYSPLASTIC SYNDROME [None]
